FAERS Safety Report 11179083 (Version 10)
Quarter: 2017Q1

REPORT INFORMATION
  Report Type: Spontaneous
  Country: US (occurrence: US)
  Receive Date: 20150610
  Receipt Date: 20170124
  Transmission Date: 20170428
  Serious: Yes (Hospitalization, Other)
  Sender: FDA-Public Use
  Company Number: US-PFIZER INC-2015188607

PATIENT
  Age: 70 Year
  Sex: Female
  Weight: 86 kg

DRUGS (5)
  1. VITAMIN C [Concomitant]
     Active Substance: ASCORBIC ACID
     Dosage: 500 MG, UNK
  2. VITAMIN D3 [Concomitant]
     Active Substance: CHOLECALCIFEROL
     Dosage: 2000 IU, UNK
  3. CADUET [Suspect]
     Active Substance: AMLODIPINE BESYLATE\ATORVASTATIN CALCIUM
     Indication: BLOOD PRESSURE ABNORMAL
     Dosage: AMLODIPINE BESILATE 10 MG /ATORVASTATIN CALCIUM 40 MG, 1X/DAY
     Route: 048
  4. CINNAMON. [Concomitant]
     Active Substance: CINNAMON
     Dosage: 500 MG, UNK
  5. CADUET [Suspect]
     Active Substance: AMLODIPINE BESYLATE\ATORVASTATIN CALCIUM
     Indication: BLOOD CHOLESTEROL INCREASED
     Dosage: AMLODIPINE BESILATE 5 MG /ATORVASTATIN CALCIUM 10 MG, 1X/DAY, UNK

REACTIONS (14)
  - Drug dose omission [Unknown]
  - Peripheral swelling [Recovered/Resolved]
  - Anxiety [Unknown]
  - Incorrect dose administered [Unknown]
  - Drug prescribing error [Unknown]
  - Cardiac valve disease [Unknown]
  - Stress [Unknown]
  - Asthenia [Unknown]
  - Epistaxis [Unknown]
  - Cerebrovascular accident [Unknown]
  - Malaise [Unknown]
  - Drug effect incomplete [Unknown]
  - Renal disorder [Unknown]
  - Drug dispensing error [Unknown]

NARRATIVE: CASE EVENT DATE: 20150528
